FAERS Safety Report 6211899-0 (Version None)
Quarter: 2009Q2

REPORT INFORMATION
  Report Type: 
  Country: None (occurrence: None)
  Receive Date: 20090602
  Receipt Date: 20090521
  Transmission Date: 20091009
  Serious: Yes (Other)
  Sender: FDA-Public Use
  Company Number: US-PFIZER INC-2009219609

PATIENT
  Sex: Female

DRUGS (2)
  1. CHANTIX [Suspect]
     Indication: SMOKING CESSATION THERAPY
     Dosage: UNK
     Dates: start: 20080801, end: 20080801
  2. PAXIL [Concomitant]
     Dosage: UNK

REACTIONS (16)
  - ABNORMAL DREAMS [None]
  - ANXIETY [None]
  - DEPRESSION [None]
  - FATIGUE [None]
  - FEAR [None]
  - HALLUCINATION [None]
  - INSOMNIA [None]
  - IRRITABILITY [None]
  - MANIA [None]
  - NEGATIVE THOUGHTS [None]
  - NIGHTMARE [None]
  - PANIC ATTACK [None]
  - RESTLESSNESS [None]
  - SLEEP DISORDER [None]
  - SLUGGISHNESS [None]
  - SUICIDAL IDEATION [None]
